FAERS Safety Report 19461129 (Version 1)
Quarter: 2021Q2

REPORT INFORMATION
  Report Type: Spontaneous
  Country: US (occurrence: US)
  Receive Date: 20210625
  Receipt Date: 20210625
  Transmission Date: 20210717
  Serious: No
  Sender: FDA-Public Use
  Company Number: US-ASTRAZENECA-2021A486066

PATIENT
  Sex: Female

DRUGS (1)
  1. PULMICORT FLEXHALER [Suspect]
     Active Substance: BUDESONIDE
     Indication: ASTHMA
     Dosage: TWICE DAILY, STARTING 1994 OR 1995
     Route: 055

REACTIONS (9)
  - Blood glucose abnormal [Unknown]
  - Vocal cord dysfunction [Unknown]
  - Drug ineffective [Unknown]
  - Anosmia [Not Recovered/Not Resolved]
  - Multiple allergies [Not Recovered/Not Resolved]
  - Ageusia [Not Recovered/Not Resolved]
  - Postural orthostatic tachycardia syndrome [Unknown]
  - Exposure during pregnancy [Unknown]
  - COVID-19 [Unknown]
